FAERS Safety Report 10036316 (Version 1)
Quarter: 2014Q1

REPORT INFORMATION
  Report Type: Spontaneous
  Country: US (occurrence: None)
  Receive Date: 20140306
  Receipt Date: 20140306
  Transmission Date: 20141002
  Serious: Yes (Hospitalization)
  Sender: FDA-Public Use
  Company Number: 163-21880-11113313

PATIENT
  Age: 69 Year
  Sex: Male
  Weight: 60.7 kg

DRUGS (20)
  1. REVLIMID [Suspect]
     Indication: PLASMA CELL MYELOMA
     Route: 048
     Dates: start: 20111114, end: 20111114
  2. DEXAMETHASONE [Suspect]
     Indication: PLASMA CELL MYELOMA
     Route: 042
     Dates: start: 20111114, end: 20111114
  3. ELOTUZUMAB [Suspect]
     Indication: PLASMA CELL MYELOMA
     Route: 042
     Dates: start: 20111114, end: 20111114
  4. ACETYLSALICYLIC ACID (ACETYLSALICYLIC ACID) [Concomitant]
  5. DOCUSATE SODIUM (DOCUSATE SODIUM) [Concomitant]
  6. DULOXETINE (DULOXETINE) [Concomitant]
  7. FISH OIL (FISH OIL) [Concomitant]
  8. LEVOCARNITINE (LEVOCARNITINE) [Concomitant]
  9. LISINOPRIL (LISINOPRIL) [Concomitant]
  10. LORAZEPAM (LORAZEPAM) [Concomitant]
  11. METFORMIN (METFORMIN) [Concomitant]
  12. MORPHINE CONTROLLED RELEASE (MORPHINE) [Concomitant]
  13. MULTIVITAMINS (MULTIVITAMINS) [Concomitant]
  14. OMEPRAZOLE (OMEPRAZOLE) [Concomitant]
  15. OXYCODONE (OXYCODONE) [Concomitant]
  16. SIMVASTATIN (SIMVASTATIN) [Concomitant]
  17. VITAMIN B COMPLEX (B-KOMPLEX ^LECIVA^) [Concomitant]
  18. VITAMIN D3 (COLECALCIFEROL) [Concomitant]
  19. VITAMIN E (TOCOPHEROL) [Concomitant]
  20. ALPHA LIPOIC ACID (THIOCTIC ACID) [Concomitant]

REACTIONS (1)
  - Chest pain [None]
